FAERS Safety Report 14555826 (Version 1)
Quarter: 2018Q1

REPORT INFORMATION
  Report Type: Spontaneous
  Country: US (occurrence: US)
  Receive Date: 20180221
  Receipt Date: 20180221
  Transmission Date: 20180509
  Serious: No
  Sender: FDA-Public Use
  Company Number: US-009507513-1801USA007677

PATIENT
  Age: 50 Year
  Sex: Male

DRUGS (3)
  1. BEVACIZUMAB. [Concomitant]
     Active Substance: BEVACIZUMAB
     Indication: PLEURAL NEOPLASM
     Dosage: 5 MG/KG, ON DAYS 8 AND 22, REPEATED EVERY 28-DAY CYCLE
     Route: 042
  2. KEYTRUDA [Suspect]
     Active Substance: PEMBROLIZUMAB
     Indication: PLEURAL NEOPLASM
     Dosage: 2 MG/KG, Q3W
     Route: 042
     Dates: start: 201510
  3. TEMODAR [Suspect]
     Active Substance: TEMOZOLOMIDE
     Indication: PLEURAL NEOPLASM
     Dosage: 150 MG/M2 ON DAYS 1?7 AND DAYS 15?21, REPEATED EVERY 28-DAY CYCLE
     Route: 048

REACTIONS (4)
  - Product use in unapproved indication [Unknown]
  - Off label use [Unknown]
  - Drug resistance [Unknown]
  - Dry skin [Unknown]
